FAERS Safety Report 6591014-4 (Version None)
Quarter: 2010Q1

REPORT INFORMATION
  Report Type: 
  Country: None (occurrence: None)
  Receive Date: 20100219
  Receipt Date: 20100215
  Transmission Date: 20100710
  Serious: Yes (Hospitalization)
  Sender: FDA-Public Use
  Company Number: PE-ABBOTT-09P-127-0603693-00

PATIENT
  Sex: Female
  Weight: 33 kg

DRUGS (3)
  1. RITONAVIR [Suspect]
     Indication: HIV INFECTION
     Route: 048
     Dates: start: 20061031, end: 20091104
  2. DARUNAVIR [Concomitant]
     Indication: HIV INFECTION
     Route: 048
     Dates: start: 20061031, end: 20091104
  3. DARUNAVIR [Concomitant]
     Route: 048
     Dates: start: 20090123, end: 20091104

REACTIONS (1)
  - CONVULSION [None]
